FAERS Safety Report 19723437 (Version 2)
Quarter: 2021Q3

REPORT INFORMATION
  Report Type: Report from Study
  Country: CN (occurrence: CN)
  Receive Date: 20210819
  Receipt Date: 20210915
  Transmission Date: 20211014
  Serious: Yes (Other)
  Sender: FDA-Public Use
  Company Number: NVSC2021CN181512

PATIENT
  Age: 66 Year
  Sex: Male
  Weight: 76 kg

DRUGS (3)
  1. ZYKADIA [Suspect]
     Active Substance: CERITINIB
     Dosage: 450 MG, QD, ONLY THROUGH THE MOUTH
     Route: 048
     Dates: start: 20210609
  2. ZYKADIA [Suspect]
     Active Substance: CERITINIB
     Indication: METASTASES TO PLEURA
     Dosage: 450 MG, QD, ONLY THROUGH THE MOUTH
     Route: 048
     Dates: start: 20200820, end: 202010
  3. ZYKADIA [Suspect]
     Active Substance: CERITINIB
     Indication: LUNG ADENOCARCINOMA
     Dosage: 300 MG, QD
     Route: 048
     Dates: start: 202010, end: 20210608

REACTIONS (4)
  - Hepatic function abnormal [Recovering/Resolving]
  - Metastases to the mediastinum [Not Recovered/Not Resolved]
  - Diarrhoea [Not Recovered/Not Resolved]
  - Drug-induced liver injury [Recovered/Resolved]

NARRATIVE: CASE EVENT DATE: 202010
